FAERS Safety Report 20590724 (Version 1)
Quarter: 2022Q1

REPORT INFORMATION
  Report Type: Spontaneous
  Country: US (occurrence: US)
  Receive Date: 20220314
  Receipt Date: 20220314
  Transmission Date: 20220423
  Serious: No
  Sender: FDA-Public Use
  Company Number: US-TAKEDA-2022TUS015205

PATIENT
  Sex: Female
  Weight: 64 kg

DRUGS (6)
  1. GAMMAGARD S/D [Suspect]
     Active Substance: HUMAN IMMUNOGLOBULIN G
     Indication: Product used for unknown indication
     Dosage: UNK
     Route: 042
     Dates: start: 2020
  2. GAMMAGARD S/D [Suspect]
     Active Substance: HUMAN IMMUNOGLOBULIN G
     Indication: Product used for unknown indication
     Dosage: UNK
     Route: 042
     Dates: start: 2020
  3. IMBRUVICA [Concomitant]
     Active Substance: IBRUTINIB
  4. SINGULAIR [Concomitant]
     Active Substance: MONTELUKAST SODIUM
  5. CLARITIN-D NOS [Concomitant]
     Active Substance: LORATADINE\PSEUDOEPHEDRINE SULFATE
  6. EVUSHELD [Concomitant]
     Active Substance: CILGAVIMAB\TIXAGEVIMAB

REACTIONS (1)
  - COVID-19 [Unknown]
